FAERS Safety Report 26033137 (Version 1)
Quarter: 2025Q4

REPORT INFORMATION
  Report Type: Spontaneous
  Country: GB (occurrence: GB)
  Receive Date: 20251112
  Receipt Date: 20251112
  Transmission Date: 20260118
  Serious: Yes (Other)
  Sender: AUROBINDO
  Company Number: GB-AUROBINDO-AUR-APL-2025-056228

PATIENT
  Age: 39 Year
  Sex: Female

DRUGS (1)
  1. TRANEXAMIC ACID [Suspect]
     Active Substance: TRANEXAMIC ACID
     Indication: Heavy menstrual bleeding
     Dosage: UNK
     Route: 065

REACTIONS (7)
  - Seizure [Recovered/Resolved]
  - Cerebral venous sinus thrombosis [Unknown]
  - Vision blurred [Unknown]
  - Headache [Unknown]
  - Nausea [Unknown]
  - Musculoskeletal stiffness [Unknown]
  - Vitreous floaters [Unknown]
